FAERS Safety Report 12892355 (Version 1)
Quarter: 2016Q4

REPORT INFORMATION
  Report Type: Spontaneous
  Country: FR (occurrence: FR)
  Receive Date: 20161028
  Receipt Date: 20161028
  Transmission Date: 20170207
  Serious: Yes (Other)
  Sender: FDA-Public Use
  Company Number: FR-CONCORDIA PHARMACEUTICALS INC.-E2B_00007885

PATIENT
  Age: 69 Year
  Sex: Female

DRUGS (1)
  1. PLAQUENIL [Suspect]
     Active Substance: HYDROXYCHLOROQUINE SULFATE
     Indication: SJOGREN^S SYNDROME
     Route: 048
     Dates: start: 2000

REACTIONS (6)
  - Blood immunoglobulin A increased [Unknown]
  - Blood immunoglobulin A decreased [Not Recovered/Not Resolved]
  - Dry eye [Unknown]
  - Visual field defect [Not Recovered/Not Resolved]
  - Glare [Not Recovered/Not Resolved]
  - Off label use [Unknown]

NARRATIVE: CASE EVENT DATE: 2000
